FAERS Safety Report 13783954 (Version 3)
Quarter: 2018Q4

REPORT INFORMATION
  Report Type: Spontaneous
  Country: US (occurrence: US)
  Receive Date: 20170724
  Receipt Date: 20181101
  Transmission Date: 20190204
  Serious: Yes (Other)
  Sender: FDA-Public Use
  Company Number: US-PFIZER INC-2017312198

PATIENT
  Age: 17 Year
  Sex: Male
  Weight: 72.3 kg

DRUGS (3)
  1. HYDROCORTISONE. [Suspect]
     Active Substance: HYDROCORTISONE
     Dosage: 18 MG/M2, DAILY (DECREASED DOSE TO 20MG IN THE MORNING AND 10MG IN THE EVENING)
  2. HYDROCORTISONE. [Suspect]
     Active Substance: HYDROCORTISONE
     Indication: ADRENOGENITAL SYNDROME
     Dosage: 37.5 MG/M2, DAILY (40MG IN THE MORNING AND 20MG IN THE EVENING)
  3. FLUDROCORTISONE [Suspect]
     Active Substance: FLUDROCORTISONE
     Indication: ADRENOGENITAL SYNDROME
     Dosage: UNK (FIRST 1-2 YEARS AFTER DIAGNOSIS)

REACTIONS (2)
  - Medication error [Unknown]
  - Treatment noncompliance [Unknown]
